FAERS Safety Report 24904425 (Version 1)
Quarter: 2025Q1

REPORT INFORMATION
  Report Type: Spontaneous
  Country: US (occurrence: None)
  Receive Date: 20250129
  Receipt Date: 20250129
  Transmission Date: 20250408
  Serious: Yes (Other)
  Sender: FDA-CTU
  Company Number: None

PATIENT
  Age: 82 Year
  Sex: Female
  Weight: 58.51 kg

DRUGS (1)
  1. KEYTRUDA [Suspect]
     Active Substance: PEMBROLIZUMAB
     Indication: Neoplasm malignant
     Dosage: FREQUENCY : EVERY THREE WEEKS;?
     Route: 042
     Dates: end: 20231119

REACTIONS (5)
  - Malaise [None]
  - Pruritus [None]
  - Dental caries [None]
  - Toothache [None]
  - Gingival disorder [None]

NARRATIVE: CASE EVENT DATE: 20231101
